FAERS Safety Report 24059670 (Version 1)
Quarter: 2024Q3

REPORT INFORMATION
  Report Type: Spontaneous
  Country: PL (occurrence: PL)
  Receive Date: 20240708
  Receipt Date: 20240708
  Transmission Date: 20241016
  Serious: Yes (Hospitalization)
  Sender: ACCORD
  Company Number: PL-MLMSERVICE-20240620-PI107024-00232-2

PATIENT
  Age: 57 Year
  Sex: Female

DRUGS (2)
  1. MYCOPHENOLATE MOFETIL [Suspect]
     Active Substance: MYCOPHENOLATE MOFETIL
     Indication: Immunosuppressant drug therapy
     Dates: end: 201406
  2. TACROLIMUS [Concomitant]
     Active Substance: TACROLIMUS
     Indication: Immunosuppressant drug therapy

REACTIONS (4)
  - Bullous erysipelas [Recovering/Resolving]
  - Septic shock [Recovering/Resolving]
  - Escherichia infection [Recovering/Resolving]
  - Bullous haemorrhagic dermatosis [Recovering/Resolving]

NARRATIVE: CASE EVENT DATE: 20140604
